FAERS Safety Report 10173962 (Version 1)
Quarter: 2014Q2

REPORT INFORMATION
  Report Type: Spontaneous
  Country: US (occurrence: None)
  Receive Date: 20140514
  Receipt Date: 20140514
  Transmission Date: 20141212
  Serious: Yes (Other)
  Sender: FDA-Public Use
  Company Number: None

PATIENT
  Age: 25 Year
  Sex: Female
  Weight: 48.54 kg

DRUGS (1)
  1. PROZAC [Suspect]
     Indication: ADRENAL DISORDER
     Dosage: 1 PILL
     Route: 048
     Dates: start: 20131204, end: 20140205

REACTIONS (3)
  - Anxiety [None]
  - Panic attack [None]
  - Insomnia [None]
